FAERS Safety Report 10404583 (Version 1)
Quarter: 2014Q2

REPORT INFORMATION
  Report Type: Spontaneous
  Country: US (occurrence: None)
  Receive Date: 20140530
  Receipt Date: 20140530
  Transmission Date: 20141212
  Serious: Yes (Other)
  Sender: FDA-Public Use
  Company Number: 20140158

PATIENT
  Sex: 0

DRUGS (1)
  1. INJECTAFER (FERRIC CARBOXYMALTOSE INJECTION) [Suspect]
     Indication: PRODUCT USED FOR UNKNOWN INDICATION
     Dosage: DOSE UNKNOWN

REACTIONS (1)
  - Anaphylactic reaction [None]
